FAERS Safety Report 6978794-0 (Version None)
Quarter: 2010Q3

REPORT INFORMATION
  Report Type: 
  Country: None (occurrence: None)
  Receive Date: 20100913
  Receipt Date: 20100906
  Transmission Date: 20110219
  Serious: Yes (Other)
  Sender: FDA-Public Use
  Company Number: MX-SANOFI-AVENTIS-2010SA051970

PATIENT
  Age: 47 Year
  Sex: Female
  Weight: 60 kg

DRUGS (9)
  1. LANTUS [Suspect]
     Indication: TYPE 2 DIABETES MELLITUS
     Route: 058
     Dates: start: 20090401, end: 20091201
  2. LANTUS [Suspect]
     Route: 058
     Dates: start: 20091201, end: 20100901
  3. LANTUS [Suspect]
     Route: 058
     Dates: start: 20091201, end: 20100901
  4. LANTUS [Suspect]
     Route: 058
     Dates: start: 20100901
  5. LANTUS [Suspect]
     Route: 058
     Dates: start: 20100901
  6. GLIBENCLAMIDE/METFORMIN HYDROCHLORIDE [Concomitant]
     Indication: TYPE 2 DIABETES MELLITUS
     Route: 048
     Dates: start: 20090401, end: 20091201
  7. MULTI-VITAMINS [Concomitant]
     Route: 048
     Dates: start: 20091201
  8. METFORMIN [Concomitant]
     Indication: TYPE 2 DIABETES MELLITUS
     Route: 048
     Dates: start: 20091201
  9. DRUG USED IN DIABETES [Concomitant]
     Indication: TYPE 2 DIABETES MELLITUS

REACTIONS (5)
  - BLOOD PRESSURE INCREASED [None]
  - DIZZINESS [None]
  - HYPERGLYCAEMIA [None]
  - MALAISE [None]
  - WEIGHT DECREASED [None]
